FAERS Safety Report 12631094 (Version 2)
Quarter: 2016Q3

REPORT INFORMATION
  Report Type: Spontaneous
  Country: US (occurrence: US)
  Receive Date: 20160808
  Receipt Date: 20160808
  Transmission Date: 20161109
  Serious: No
  Sender: FDA-Public Use
  Company Number: US-BEH-2015052249

PATIENT
  Sex: Female
  Weight: 108 kg

DRUGS (19)
  1. LANSOPRAZOLE. [Concomitant]
     Active Substance: LANSOPRAZOLE
  2. GABAPENTIN. [Concomitant]
     Active Substance: GABAPENTIN
  3. NORCO [Concomitant]
     Active Substance: ACETAMINOPHEN\HYDROCODONE BITARTRATE
  4. EPIPEN [Concomitant]
     Active Substance: EPINEPHRINE
     Indication: ANAPHYLACTIC REACTION
  5. LOVASTATIN. [Concomitant]
     Active Substance: LOVASTATIN
  6. BUDESONIDE. [Concomitant]
     Active Substance: BUDESONIDE
  7. ALLEGRA [Concomitant]
     Active Substance: FEXOFENADINE HYDROCHLORIDE
  8. TIZANIDINE. [Concomitant]
     Active Substance: TIZANIDINE
  9. HIZENTRA [Suspect]
     Active Substance: HUMAN IMMUNOGLOBULIN G
     Indication: IMMUNODEFICIENCY COMMON VARIABLE
     Route: 058
  10. FLONASE [Concomitant]
     Active Substance: FLUTICASONE PROPIONATE
  11. ACETAMINOPHEN. [Concomitant]
     Active Substance: ACETAMINOPHEN
  12. HYDROCHLOROTHIAZIDE. [Concomitant]
     Active Substance: HYDROCHLOROTHIAZIDE
  13. COLACE [Concomitant]
     Active Substance: DOCUSATE SODIUM
  14. DIFLUCAN [Concomitant]
     Active Substance: FLUCONAZOLE
  15. DIPHENHYDRAMINE. [Concomitant]
     Active Substance: DIPHENHYDRAMINE
  16. LIDOCAINE. [Concomitant]
     Active Substance: LIDOCAINE
  17. LEVOTHYROXINE. [Concomitant]
     Active Substance: LEVOTHYROXINE
  18. VITAMIN B12 [Concomitant]
     Active Substance: CYANOCOBALAMIN
  19. NYSTOP [Concomitant]
     Active Substance: NYSTATIN

REACTIONS (3)
  - Headache [Unknown]
  - Sinusitis [Unknown]
  - Arthralgia [Unknown]
